FAERS Safety Report 11689142 (Version 1)
Quarter: 2015Q4

REPORT INFORMATION
  Report Type: Spontaneous
  Country: AE (occurrence: AE)
  Receive Date: 20151102
  Receipt Date: 20151102
  Transmission Date: 20160304
  Serious: Yes (Hospitalization, Other)
  Sender: FDA-Public Use
  Company Number: PHHY2015AE136033

PATIENT
  Age: 3 Year
  Sex: Male
  Weight: 14 kg

DRUGS (1)
  1. EXJADE [Suspect]
     Active Substance: DEFERASIROX
     Indication: PRODUCT USED FOR UNKNOWN INDICATION
     Dosage: 350 MG, QD
     Route: 065
     Dates: start: 20130630, end: 20150730

REACTIONS (8)
  - Metabolic acidosis [Recovering/Resolving]
  - Vomiting [Unknown]
  - Muscular weakness [Unknown]
  - Muscle atrophy [Unknown]
  - Nausea [Unknown]
  - Bone pain [Unknown]
  - Hypoglycaemia [Unknown]
  - Haematemesis [Unknown]

NARRATIVE: CASE EVENT DATE: 20150426
